FAERS Safety Report 23514986 (Version 1)
Quarter: 2024Q1

REPORT INFORMATION
  Report Type: Spontaneous
  Country: DK (occurrence: DK)
  Receive Date: 20240212
  Receipt Date: 20240212
  Transmission Date: 20240409
  Serious: Yes (Life-Threatening, Hospitalization)
  Sender: FDA-Public Use
  Company Number: None

PATIENT
  Age: 80 Year
  Sex: Female

DRUGS (2)
  1. DARZALEX [Suspect]
     Active Substance: DARATUMUMAB
     Indication: Plasma cell myeloma
     Dosage: STRENGTH: UNKNOWN.DOSE: UNKNOWN.
     Route: 065
     Dates: end: 202401
  2. DEXAMETHASONE [Concomitant]
     Active Substance: DEXAMETHASONE
     Indication: Plasma cell myeloma
     Dates: start: 20220902

REACTIONS (2)
  - Brain abscess [Recovering/Resolving]
  - Meningitis listeria [Recovering/Resolving]

NARRATIVE: CASE EVENT DATE: 20240122
